FAERS Safety Report 15416856 (Version 3)
Quarter: 2019Q2

REPORT INFORMATION
  Report Type: Report from Study
  Country: US (occurrence: US)
  Receive Date: 20180924
  Receipt Date: 20190625
  Transmission Date: 20190711
  Serious: Yes (Hospitalization)
  Sender: FDA-Public Use
  Company Number: PHHY2018US100976

PATIENT
  Age: 34 Year
  Sex: Female
  Weight: 74.83 kg

DRUGS (1)
  1. GILENYA [Suspect]
     Active Substance: FINGOLIMOD HYDROCHLORIDE
     Indication: MULTIPLE SCLEROSIS
     Dosage: 0.5 MG, QD
     Route: 048
     Dates: start: 20150528

REACTIONS (10)
  - Asthenia [Recovering/Resolving]
  - Fatigue [Recovering/Resolving]
  - Muscular weakness [Recovering/Resolving]
  - Chest pain [Recovered/Resolved]
  - Upper respiratory tract infection [Recovering/Resolving]
  - Fibromyalgia [Unknown]
  - Stress [Unknown]
  - Abdominal discomfort [Recovering/Resolving]
  - Infectious mononucleosis [Unknown]
  - Sinus bradycardia [Unknown]

NARRATIVE: CASE EVENT DATE: 20150731
